FAERS Safety Report 9252546 (Version 1)
Quarter: 2013Q2

REPORT INFORMATION
  Report Type: Spontaneous
  Country: US (occurrence: US)
  Receive Date: 20130424
  Receipt Date: 20130424
  Transmission Date: 20140414
  Serious: Yes (Other)
  Sender: FDA-Public Use
  Company Number: US-PFIZER INC-2013128852

PATIENT
  Sex: Female

DRUGS (9)
  1. LYRICA [Suspect]
     Indication: RHEUMATOID ARTHRITIS
     Dosage: UNK
     Dates: start: 2005
  2. CELEBREX [Concomitant]
     Dosage: UNK
  3. SYNTHROID [Concomitant]
     Dosage: UNK
  4. MORPHINE [Concomitant]
     Dosage: 30 MG, UNK
  5. PREDNISONE [Concomitant]
     Dosage: UNK
  6. TRAZODONE [Concomitant]
     Dosage: UNK
  7. EFFEXOR [Concomitant]
     Dosage: UNK
  8. CELEXA [Concomitant]
     Dosage: UNK
  9. SEROQUEL [Concomitant]
     Dosage: UNK

REACTIONS (3)
  - Upper limb fracture [Unknown]
  - Amnesia [Unknown]
  - Muscle spasms [Unknown]
